FAERS Safety Report 11002201 (Version 4)
Quarter: 2015Q3

REPORT INFORMATION
  Report Type: Spontaneous
  Country: US (occurrence: US)
  Receive Date: 20150408
  Receipt Date: 20150723
  Transmission Date: 20151125
  Serious: No
  Sender: FDA-Public Use
  Company Number: US-ASTELLAS-2015US006481

PATIENT
  Age: 64 Year
  Sex: Male

DRUGS (2)
  1. MYRBETRIQ [Suspect]
     Active Substance: MIRABEGRON
     Indication: POLLAKIURIA
     Route: 048
     Dates: start: 20150221
  2. MYRBETRIQ [Suspect]
     Active Substance: MIRABEGRON
     Dates: start: 201502

REACTIONS (4)
  - Drug ineffective [Unknown]
  - Dry throat [Recovered/Resolved]
  - Intentional product use issue [Unknown]
  - Product use issue [Unknown]

NARRATIVE: CASE EVENT DATE: 201502
